FAERS Safety Report 20069353 (Version 1)
Quarter: 2021Q4

REPORT INFORMATION
  Report Type: Spontaneous
  Country: US (occurrence: None)
  Receive Date: 20211112
  Receipt Date: 20211112
  Transmission Date: 20220303
  Serious: Yes (Life-Threatening, Hospitalization)
  Sender: FDA-Public Use
  Company Number: None

PATIENT
  Age: 78 Year
  Sex: Male
  Weight: 90 kg

DRUGS (1)
  1. RIVAROXABAN [Suspect]
     Active Substance: RIVAROXABAN
     Indication: Atrial fibrillation
     Dosage: FREQUENCY : DAILY;?
     Route: 048
     Dates: start: 20201218, end: 20210711

REACTIONS (7)
  - Blood glucose increased [None]
  - Hypotension [None]
  - Presyncope [None]
  - Upper gastrointestinal haemorrhage [None]
  - Hypovolaemic shock [None]
  - Anaemia [None]
  - Vision blurred [None]

NARRATIVE: CASE EVENT DATE: 20210711
